FAERS Safety Report 9440921 (Version 3)
Quarter: 2013Q3

REPORT INFORMATION
  Report Type: Report from Study
  Country: CA (occurrence: CA)
  Receive Date: 20130805
  Receipt Date: 20130828
  Transmission Date: 20140515
  Serious: Yes (Other)
  Sender: FDA-Public Use
  Company Number: PHHY2013CA083560

PATIENT
  Sex: Female
  Weight: 65 kg

DRUGS (8)
  1. ACLASTA/ZOLEDRONATE [Suspect]
     Dosage: 5 MG/100ML, ANNUAL
     Route: 042
     Dates: start: 20091020
  2. ACLASTA/ZOLEDRONATE [Suspect]
     Dosage: 5 MG/100ML, ANNUAL
     Route: 042
     Dates: start: 20121023
  3. ACTONEL [Concomitant]
     Indication: DYSPEPSIA
     Dosage: 35 MG, WEEKLY
     Dates: start: 200611, end: 20091020
  4. HORMONES NOS [Concomitant]
     Dosage: UNK UKN, WEEKLY
     Dates: start: 1985, end: 20091020
  5. VITAMIN D [Concomitant]
     Dosage: 800 U, EVERYDAY
     Dates: start: 1985
  6. CALCIUM [Concomitant]
     Dosage: 1000 MG, EVERYDAY
     Dates: start: 1985
  7. SYNTHROID [Concomitant]
     Dosage: 0.05 UKN, UNK
  8. CALCIUM + VIT D [Concomitant]
     Dosage: UNK UKN, UNK

REACTIONS (3)
  - Lumbar vertebral fracture [Recovered/Resolved]
  - Blood pressure systolic increased [Unknown]
  - Drug ineffective [Unknown]
